FAERS Safety Report 10473427 (Version 2)
Quarter: 2014Q3

REPORT INFORMATION
  Report Type: Report from Study
  Country: US (occurrence: US)
  Receive Date: 20140924
  Receipt Date: 20140924
  Transmission Date: 20150326
  Serious: Yes (Other)
  Sender: FDA-Public Use
  Company Number: US-B.I. PHARMACEUTICALS,INC./RIDGEFIELD-2013-BI-37936BI

PATIENT
  Age: 48 Year
  Sex: Male

DRUGS (3)
  1. GILOTRIF [Suspect]
     Active Substance: AFATINIB
     Dosage: 40 MG
     Route: 048
     Dates: start: 20131106, end: 201402
  2. GILOTRIF [Suspect]
     Active Substance: AFATINIB
     Dosage: 30 MG
     Route: 048
     Dates: start: 20140411
  3. GILOTRIF [Suspect]
     Active Substance: AFATINIB
     Indication: LUNG NEOPLASM MALIGNANT
     Dosage: 30 MG
     Route: 048
     Dates: start: 201310

REACTIONS (13)
  - Drug ineffective [Unknown]
  - Drug ineffective [Not Recovered/Not Resolved]
  - Eye irritation [Unknown]
  - Candida infection [Unknown]
  - Diarrhoea [Unknown]
  - Abscess [Unknown]
  - Hair disorder [Unknown]
  - Therapy cessation [Unknown]
  - Dry mouth [Recovered/Resolved]
  - Stomatitis [Unknown]
  - Antibiotic therapy [Unknown]
  - Rash [Unknown]
  - Ocular hyperaemia [Unknown]

NARRATIVE: CASE EVENT DATE: 20140314
